FAERS Safety Report 20339014 (Version 2)
Quarter: 2022Q1

REPORT INFORMATION
  Report Type: Spontaneous
  Country: US (occurrence: US)
  Receive Date: 20220117
  Receipt Date: 20220120
  Transmission Date: 20220423
  Serious: Yes (Death, Life-Threatening, Hospitalization, Other)
  Sender: FDA-Public Use
  Company Number: US-STRIDES ARCOLAB LIMITED-2022SP000388

PATIENT
  Age: 6 Decade
  Sex: Male

DRUGS (19)
  1. PREDNISOLONE [Suspect]
     Active Substance: PREDNISOLONE
     Indication: Polyarteritis nodosa
     Dosage: UNK
     Route: 065
  2. PREDNISOLONE [Suspect]
     Active Substance: PREDNISOLONE
     Indication: Acute febrile neutrophilic dermatosis
     Dosage: UNK, UNABLE TO TAPER PREDNISONE LOWER THAN 20-30 MG/DAY
     Route: 065
  3. PREDNISOLONE [Suspect]
     Active Substance: PREDNISOLONE
     Dosage: 50 MILLIGRAM DAILY (PER HOUR)
     Route: 065
     Dates: start: 2020, end: 2021
  4. PREDNISOLONE [Suspect]
     Active Substance: PREDNISOLONE
     Dosage: 30 MILLIGRAM DAILY (PER 24 HOUR)
     Route: 065
  5. PREDNISOLONE [Suspect]
     Active Substance: PREDNISOLONE
     Dosage: 20 MILLIGRAM DAILY (PER 24 HOUR)
     Route: 065
  6. DEXAMETHASONE [Suspect]
     Active Substance: DEXAMETHASONE
     Indication: Haemophagocytic lymphohistiocytosis
     Dosage: 10 MILLIGRAM/SQ. METER/DAY
     Route: 065
     Dates: start: 2021
  7. MYCOPHENOLATE MOFETIL [Suspect]
     Active Substance: MYCOPHENOLATE MOFETIL
     Indication: Polyarteritis nodosa
     Dosage: UNK
     Route: 065
  8. MYCOPHENOLATE MOFETIL [Suspect]
     Active Substance: MYCOPHENOLATE MOFETIL
     Indication: Acute febrile neutrophilic dermatosis
  9. RITUXIMAB [Suspect]
     Active Substance: RITUXIMAB
     Indication: Haemophagocytic lymphohistiocytosis
     Dosage: 375 MILLIGRAM/SQ. METER
     Route: 065
     Dates: start: 2021
  10. METHYLPREDNISOLONE [Suspect]
     Active Substance: METHYLPREDNISOLONE
     Indication: Premedication
     Dosage: 100 MILLIGRAM
     Route: 065
     Dates: start: 2021
  11. RUXOLITINIB [Suspect]
     Active Substance: RUXOLITINIB
     Indication: Haemophagocytic lymphohistiocytosis
     Dosage: 15 MILLIGRAM, BID
     Route: 065
     Dates: start: 2021
  12. INFLIXIMAB [Suspect]
     Active Substance: INFLIXIMAB
     Indication: Polyarteritis nodosa
     Dosage: 5 MILLIGRAM/KILOGRAM, INFUSION, EVERY 6 WEEKS
     Route: 042
     Dates: start: 2020
  13. INFLIXIMAB [Suspect]
     Active Substance: INFLIXIMAB
     Indication: Acute febrile neutrophilic dermatosis
  14. METHOTREXATE [Suspect]
     Active Substance: METHOTREXATE
     Indication: Polyarteritis nodosa
     Dosage: UNK
     Route: 065
  15. METHOTREXATE [Suspect]
     Active Substance: METHOTREXATE
     Indication: Acute febrile neutrophilic dermatosis
     Dosage: UNK, WEEKLY
     Route: 048
     Dates: start: 2020
  16. DAPSONE [Suspect]
     Active Substance: DAPSONE
     Indication: Polyarteritis nodosa
     Dosage: UNK
     Route: 065
  17. DAPSONE [Suspect]
     Active Substance: DAPSONE
     Indication: Acute febrile neutrophilic dermatosis
  18. COLCHICINE [Suspect]
     Active Substance: COLCHICINE
     Indication: Polyarteritis nodosa
     Dosage: UNK
     Route: 065
  19. COLCHICINE [Suspect]
     Active Substance: COLCHICINE
     Indication: Acute febrile neutrophilic dermatosis

REACTIONS (21)
  - Pulseless electrical activity [Fatal]
  - Cardiac arrest [Fatal]
  - Pseudomonas infection [Fatal]
  - Pseudomonal bacteraemia [Fatal]
  - Septic shock [Fatal]
  - Pseudomonal sepsis [Fatal]
  - Renal infarct [Fatal]
  - Acute respiratory failure [Fatal]
  - Epstein-Barr virus infection [Fatal]
  - Actinomycotic pulmonary infection [Fatal]
  - Pneumonia [Fatal]
  - Actinomycosis [Fatal]
  - Lung consolidation [Fatal]
  - Haemophagocytic lymphohistiocytosis [Fatal]
  - Epstein-Barr virus infection reactivation [Recovered/Resolved]
  - Disseminated blastomycosis [Unknown]
  - Osteoporosis [Unknown]
  - Glaucoma [Unknown]
  - Myopathy [Unknown]
  - Drug ineffective [Unknown]
  - Off label use [Unknown]

NARRATIVE: CASE EVENT DATE: 20210101
